FAERS Safety Report 24379396 (Version 1)
Quarter: 2024Q3

REPORT INFORMATION
  Report Type: Spontaneous
  Country: US (occurrence: US)
  Receive Date: 20240930
  Receipt Date: 20240930
  Transmission Date: 20241016
  Serious: No
  Sender: BAYER
  Company Number: US-BAYER-2024A138047

PATIENT
  Sex: Female

DRUGS (1)
  1. MIRENA [Suspect]
     Active Substance: LEVONORGESTREL
     Dosage: 20?G/DAY
     Route: 015

REACTIONS (4)
  - Breast pain [None]
  - Amenorrhoea [Recovered/Resolved]
  - Abdominal pain lower [None]
  - Menstruation delayed [None]
